FAERS Safety Report 24433783 (Version 1)
Quarter: 2024Q4

REPORT INFORMATION
  Report Type: Report from Study
  Country: DE (occurrence: DE)
  Receive Date: 20241014
  Receipt Date: 20241014
  Transmission Date: 20250115
  Serious: Yes (Other)
  Sender: BIOCON
  Company Number: DE-ROCHE-2292856

PATIENT

DRUGS (3)
  1. TRASTUZUMAB [Suspect]
     Active Substance: TRASTUZUMAB
     Indication: Breast cancer
     Dosage: 390 MILLIGRAM, Q3W (MOST RECENT DOSE ADMINISTERED ON 13/AUG/2019)
     Route: 042
     Dates: start: 20190318
  2. TRASTUZUMAB [Suspect]
     Active Substance: TRASTUZUMAB
     Dosage: 390 MILLIGRAM, Q3W (MOST RECENT DOSE ADMINISTERED ON 13/AUG/2019)
     Route: 042
     Dates: start: 20190813
  3. CAPECITABINE [Suspect]
     Active Substance: CAPECITABINE
     Indication: Breast cancer
     Dosage: 4000 MILLIGRAM, QD (PATIENT RECEIVED MOST RECENT DOSE OF CAPECITABINE (4000 MG) DAILY ON 24/MAR/2019
     Route: 048
     Dates: start: 20190318

REACTIONS (4)
  - Respiratory disorder [Not Recovered/Not Resolved]
  - Stomatitis [Recovered/Resolved]
  - Dyspnoea [Not Recovered/Not Resolved]
  - Pleural effusion [Recovering/Resolving]

NARRATIVE: CASE EVENT DATE: 20190325
